FAERS Safety Report 5740252-9 (Version None)
Quarter: 2008Q2

REPORT INFORMATION
  Report Type: 
  Country: None (occurrence: None)
  Receive Date: 20080516
  Receipt Date: 20080506
  Transmission Date: 20081010
  Serious: Yes (Hospitalization)
  Sender: FDA-Public Use
  Company Number: US-JNJFOC-20080304753

PATIENT
  Sex: Female
  Weight: 40.82 kg

DRUGS (4)
  1. DURAGESIC-100 [Suspect]
     Indication: HEADACHE
     Route: 062
  2. METHADONE HCL [Concomitant]
     Indication: HEADACHE
     Route: 048
  3. NEURONTIN [Concomitant]
     Indication: HEADACHE
     Route: 048
  4. MORPHINE [Concomitant]
     Indication: HEADACHE
     Route: 048

REACTIONS (3)
  - MENINGITIS FUNGAL [None]
  - PYREXIA [None]
  - RESPIRATORY DISTRESS [None]
